FAERS Safety Report 24634773 (Version 10)
Quarter: 2025Q2

REPORT INFORMATION
  Report Type: Spontaneous
  Country: FR (occurrence: FR)
  Receive Date: 20241119
  Receipt Date: 20250521
  Transmission Date: 20250717
  Serious: Yes (Death, Life-Threatening, Other)
  Sender: SANDOZ
  Company Number: None

PATIENT
  Age: 87 Year
  Sex: Male
  Weight: 71 kg

DRUGS (22)
  1. LOPERAMIDE HYDROCHLORIDE [Suspect]
     Active Substance: LOPERAMIDE HYDROCHLORIDE
     Indication: Diarrhoea
     Route: 048
     Dates: end: 202410
  2. CANDESARTAN [Suspect]
     Active Substance: CANDESARTAN
     Indication: Hypertension
     Dosage: 16 MG, QD
     Route: 048
     Dates: end: 202410
  3. MONTMORILLONITE [Suspect]
     Active Substance: MONTMORILLONITE
     Indication: Diarrhoea
     Route: 048
     Dates: end: 202410
  4. ESOMEPRAZOLE [Suspect]
     Active Substance: ESOMEPRAZOLE
     Indication: Prophylaxis against gastrointestinal ulcer
     Route: 048
     Dates: end: 202410
  5. HYDROCHLOROTHIAZIDE [Suspect]
     Active Substance: HYDROCHLOROTHIAZIDE
     Indication: Hypertension
     Dosage: 12.5 MG, QD
     Route: 048
     Dates: end: 202410
  6. IBUPROFEN [Suspect]
     Active Substance: IBUPROFEN
     Indication: Pain
     Dosage: 3 DOSAGE FORM, QD
     Route: 003
     Dates: end: 202410
  7. KARDEGIC [Suspect]
     Active Substance: ASPIRIN DL-LYSINE
     Indication: Cardiovascular event prophylaxis
     Dosage: 1 DF, QD(ORAL SOLUTION IN SINGLE-DOSE SACHETS)
     Route: 048
     Dates: end: 202410
  8. LOPERAMIDE [Suspect]
     Active Substance: LOPERAMIDE
     Indication: Diarrhoea
     Route: 048
     Dates: end: 202410
  9. METOCLOPRAMIDE [Suspect]
     Active Substance: METOCLOPRAMIDE
     Indication: Diarrhoea
     Route: 048
     Dates: end: 202410
  10. METOCLOPRAMIDE [Suspect]
     Active Substance: METOCLOPRAMIDE
     Indication: Nausea
  11. METOCLOPRAMIDE HYDROCHLORIDE [Suspect]
     Active Substance: METOCLOPRAMIDE HYDROCHLORIDE
     Indication: Nausea
     Route: 048
     Dates: end: 202410
  12. ACETAMINOPHEN [Suspect]
     Active Substance: ACETAMINOPHEN
     Indication: Pain
     Route: 048
  13. HERBALS\SAW PALMETTO [Suspect]
     Active Substance: HERBALS\SAW PALMETTO
     Indication: Prostate cancer
     Dosage: 2 DF, QD
     Route: 048
  14. PLUVICTO [Suspect]
     Active Substance: LUTETIUM LU-177 VIPIVOTIDE TETRAXETAN
     Indication: Prostate cancer metastatic
     Route: 042
     Dates: start: 20240723, end: 20240903
  15. RILMENIDINE [Suspect]
     Active Substance: RILMENIDINE
     Indication: Hypertension
     Dosage: 2 MG, QD
     Route: 048
     Dates: end: 202410
  16. RILMENIDINE [Suspect]
     Active Substance: RILMENIDINE
     Indication: Hypertension
  17. SERETIDE [Suspect]
     Active Substance: FLUTICASONE PROPIONATE\SALMETEROL XINAFOATE
     Indication: Nausea
     Dosage: 2.000DF QD
     Route: 055
  18. SERETIDE [Suspect]
     Active Substance: FLUTICASONE PROPIONATE\SALMETEROL XINAFOATE
     Indication: Chronic obstructive pulmonary disease
     Dosage: 2 DF, QD(POWDER FOR INHALATION IN SINGLEDOSE)
     Route: 055
  19. MONTMORILLONITE [Suspect]
     Active Substance: MONTMORILLONITE
     Indication: Diarrhoea
     Route: 048
     Dates: end: 202410
  20. TAMSULOSIN HYDROCHLORIDE [Suspect]
     Active Substance: TAMSULOSIN HYDROCHLORIDE
     Indication: Prostate cancer
     Dosage: 0.4 MG, QD
     Route: 048
  21. TAMSULOSIN HYDROCHLORIDE [Suspect]
     Active Substance: TAMSULOSIN HYDROCHLORIDE
     Indication: Diarrhoea
     Dosage: 0.400MG QM
     Route: 048
  22. CHOLECALCIFEROL [Suspect]
     Active Substance: CHOLECALCIFEROL
     Indication: Vitamin supplementation
     Route: 048

REACTIONS (4)
  - Peptic ulcer [Fatal]
  - Acquired haemophilia [Recovering/Resolving]
  - Off label use [Unknown]
  - Product use in unapproved indication [Unknown]

NARRATIVE: CASE EVENT DATE: 20240930
